FAERS Safety Report 4394096-3 (Version None)
Quarter: 2004Q2

REPORT INFORMATION
  Report Type: 
  Country: None (occurrence: None)
  Receive Date: 20040630
  Receipt Date: 19970611
  Transmission Date: 20050107
  Serious: Yes (Hospitalization)
  Sender: FDA-Public Use
  Company Number: 34698

PATIENT
  Age: 45 Year
  Sex: Male
  Weight: 100 kg

DRUGS (2)
  1. PROLASTIN [Suspect]
     Indication: ALPHA-1 ANTI-TRYPSIN DEFICIENCY
     Dosage: INTRAVENOUS
     Route: 042
     Dates: start: 19970429
  2. TYLENOL [Concomitant]

REACTIONS (6)
  - HAEMOPTYSIS [None]
  - INFUSION RELATED REACTION [None]
  - LOBAR PNEUMONIA [None]
  - PRURITUS [None]
  - SPUTUM PURULENT [None]
  - URTICARIA [None]
